FAERS Safety Report 24429054 (Version 1)
Quarter: 2024Q4

REPORT INFORMATION
  Report Type: Spontaneous
  Country: IT (occurrence: IT)
  Receive Date: 20241011
  Receipt Date: 20241011
  Transmission Date: 20250115
  Serious: Yes (Hospitalization)
  Sender: BAUSCH AND LOMB
  Company Number: None

PATIENT
  Age: 61 Year
  Sex: Male
  Weight: 84 kg

DRUGS (1)
  1. BRODALUMAB [Suspect]
     Active Substance: BRODALUMAB
     Indication: Psoriasis
     Dosage: 210 MG EVERY 2 WEEKS
     Route: 058
     Dates: start: 20200701, end: 20240505

REACTIONS (1)
  - Hepatic neoplasm [Recovered/Resolved with Sequelae]

NARRATIVE: CASE EVENT DATE: 20240207
